FAERS Safety Report 9515085 (Version 1)
Quarter: 2013Q3

REPORT INFORMATION
  Report Type: Spontaneous
  Country: CA (occurrence: CA)
  Receive Date: 20130911
  Receipt Date: 20130911
  Transmission Date: 20140515
  Serious: Yes (Other)
  Sender: FDA-Public Use
  Company Number: CA-JNJFOC-20130903415

PATIENT
  Sex: Male

DRUGS (4)
  1. XARELTO [Suspect]
     Indication: ARRHYTHMIA PROPHYLAXIS
     Route: 048
  2. XARELTO [Suspect]
     Indication: ARRHYTHMIA PROPHYLAXIS
     Route: 048
  3. XARELTO [Suspect]
     Indication: ARRHYTHMIA PROPHYLAXIS
     Route: 048
  4. XELODA [Concomitant]
     Indication: NEOPLASM MALIGNANT
     Route: 065

REACTIONS (5)
  - Retinal artery occlusion [Unknown]
  - Muscle haemorrhage [Unknown]
  - Intestinal operation [Unknown]
  - Retinal vascular thrombosis [Unknown]
  - Blindness unilateral [Unknown]
